FAERS Safety Report 7237252-9 (Version None)
Quarter: 2011Q1

REPORT INFORMATION
  Report Type: 
  Country: None (occurrence: None)
  Receive Date: 20110112
  Receipt Date: 20110103
  Transmission Date: 20110831
  Serious: Yes (Hospitalization)
  Sender: FDA-Public Use
  Company Number: 792393

PATIENT
  Age: 62 Year
  Sex: Female

DRUGS (6)
  1. (NOVOBAN) [Concomitant]
  2. DEXAMETHASONE [Concomitant]
  3. RANITIDINE [Concomitant]
  4. PACLITAXEL [Suspect]
     Indication: OVARIAN CANCER
     Dosage: 265 MG MILLIGRAM(S), INTRAVENOUS
     Route: 042
     Dates: start: 20101216, end: 20101216
  5. CARBOPLATIN [Concomitant]
  6. (TRIMETON /00072502/) [Concomitant]

REACTIONS (2)
  - CHEST DISCOMFORT [None]
  - CYANOSIS [None]
